FAERS Safety Report 10205669 (Version 2)
Quarter: 2014Q2

REPORT INFORMATION
  Report Type: Spontaneous
  Country: US (occurrence: US)
  Receive Date: 20140530
  Receipt Date: 20140613
  Transmission Date: 20141212
  Serious: Yes (Hospitalization)
  Sender: FDA-Public Use
  Company Number: US-ROCHE-1409635

PATIENT
  Sex: Male

DRUGS (13)
  1. ZELBORAF [Suspect]
     Indication: METASTATIC MALIGNANT MELANOMA
     Route: 050
  2. CELEBREX [Concomitant]
  3. DOXYCYCLINE [Concomitant]
  4. PREVACID [Concomitant]
  5. VALTREX [Concomitant]
  6. ACYCLOVIR [Concomitant]
     Route: 042
  7. DOXYCYCLINE [Concomitant]
     Route: 042
  8. PROTONIX (UNITED STATES) [Concomitant]
  9. MORPHINE [Concomitant]
     Indication: PAIN
     Dosage: PRN PAIN
     Route: 065
  10. REGLAN [Concomitant]
  11. ZOFRAN [Concomitant]
  12. ATIVAN [Concomitant]
  13. AMBIEN [Concomitant]

REACTIONS (4)
  - Small intestinal obstruction [Unknown]
  - Pancreatitis [Unknown]
  - Dysphagia [Not Recovered/Not Resolved]
  - Pain [Unknown]
